FAERS Safety Report 7458909-0 (Version None)
Quarter: 2011Q2

REPORT INFORMATION
  Report Type: 
  Country: None (occurrence: None)
  Receive Date: 20110504
  Receipt Date: 20110419
  Transmission Date: 20111010
  Serious: Yes (Death, Life-Threatening, Hospitalization, Disabling)
  Sender: FDA-Public Use
  Company Number: MA-CELGENEUS-110-50794-11011512

PATIENT
  Sex: Male
  Weight: 68 kg

DRUGS (7)
  1. EXJADE [Concomitant]
     Dosage: 2 CAPSULE
     Route: 065
     Dates: start: 20080720
  2. WHOLE BLOOD [Concomitant]
     Route: 065
     Dates: start: 20110104, end: 20110104
  3. VIDAZA [Suspect]
     Dosage: 100 MILLIGRAM
     Route: 058
     Dates: start: 20110112, end: 20110112
  4. DECRUMON [Concomitant]
     Dosage: 4285.7143 UNKNOWN
     Route: 065
     Dates: start: 20080720
  5. ONSET [Concomitant]
     Indication: HYPERURICAEMIA
     Dosage: 8 MILLIGRAM
     Route: 065
     Dates: start: 20110112
  6. ALLOPURINOL [Concomitant]
     Indication: HYPERURICAEMIA
     Dosage: 1 CAPSULE
     Route: 065
     Dates: start: 19990610
  7. STILNOX [Concomitant]
     Dosage: 1 CAPSULE
     Route: 065

REACTIONS (5)
  - SEPTIC SHOCK [None]
  - CARDIO-RESPIRATORY ARREST [None]
  - AUTONOMIC NERVOUS SYSTEM IMBALANCE [None]
  - PYREXIA [None]
  - DEPRESSED LEVEL OF CONSCIOUSNESS [None]
